FAERS Safety Report 5163181-0 (Version None)
Quarter: 2006Q4

REPORT INFORMATION
  Report Type: 
  Country: None (occurrence: None)
  Receive Date: 20061204
  Receipt Date: 20061127
  Transmission Date: 20070319
  Serious: Yes (Other)
  Sender: FDA-Public Use
  Company Number: DE-JNJFOC-20061106091

PATIENT
  Sex: Male

DRUGS (1)
  1. RISPERDAL [Suspect]
     Indication: ANXIETY
     Route: 048

REACTIONS (2)
  - DIABETES MELLITUS [None]
  - VERTEBRAL ARTERY STENOSIS [None]
